FAERS Safety Report 25661575 (Version 1)
Quarter: 2025Q3

REPORT INFORMATION
  Report Type: Spontaneous
  Country: US (occurrence: US)
  Receive Date: 20250808
  Receipt Date: 20250808
  Transmission Date: 20251020
  Serious: Yes (Death, Hospitalization, Other)
  Sender: AMGEN
  Company Number: US-AMGEN-USASP2025155901

PATIENT

DRUGS (2)
  1. RITUXIMAB [Suspect]
     Active Substance: RITUXIMAB
     Indication: Immunosuppressant drug therapy
     Route: 065
  2. Immunoglobulin [Concomitant]
     Route: 040

REACTIONS (11)
  - Complications of transplanted lung [Fatal]
  - Aortic dissection [Fatal]
  - Death [Fatal]
  - COVID-19 [Fatal]
  - Respiratory failure [Fatal]
  - Sepsis [Fatal]
  - Unevaluable event [Unknown]
  - Transplant dysfunction [Unknown]
  - Lung transplant rejection [Unknown]
  - Oesophageal disorder [Unknown]
  - Off label use [Unknown]
